FAERS Safety Report 5894123-8 (Version None)
Quarter: 2008Q3

REPORT INFORMATION
  Report Type: 
  Country: None (occurrence: None)
  Receive Date: 20080923
  Receipt Date: 20080212
  Transmission Date: 20090109
  Serious: No
  Sender: FDA-Public Use
  Company Number: US-ASTRAZENECA-2008UW01049

PATIENT
  Age: 19817 Day
  Sex: Male

DRUGS (1)
  1. SEROQUEL [Suspect]
     Indication: BIPOLAR DISORDER
     Dosage: 100 MG AND 300 MG
     Route: 048
     Dates: start: 20020101, end: 20060401

REACTIONS (4)
  - DIABETES MELLITUS [None]
  - ERECTILE DYSFUNCTION [None]
  - RENAL FAILURE [None]
  - WEIGHT INCREASED [None]
